FAERS Safety Report 7709101-3 (Version None)
Quarter: 2011Q3

REPORT INFORMATION
  Report Type: 
  Country: None (occurrence: None)
  Receive Date: 20110825
  Receipt Date: 20110811
  Transmission Date: 20111222
  Serious: Yes (Congenital Anomaly, Other)
  Sender: FDA-Public Use
  Company Number: PHHY2011JP73905

PATIENT
  Sex: Female

DRUGS (3)
  1. TANATRIL [Suspect]
     Dosage: MATERNAL DOSE (1 TABLET DAILY)
     Route: 064
  2. ATELEC [Suspect]
     Route: 064
  3. DIOVAN [Suspect]
     Route: 064

REACTIONS (4)
  - RENAL FAILURE [None]
  - KIDNEY ENLARGEMENT [None]
  - CONGENITAL CYSTIC KIDNEY DISEASE [None]
  - MATERNAL EXPOSURE DURING PREGNANCY [None]
